FAERS Safety Report 24586428 (Version 1)
Quarter: 2024Q4

REPORT INFORMATION
  Report Type: Spontaneous
  Country: CA (occurrence: CA)
  Receive Date: 20241106
  Receipt Date: 20241106
  Transmission Date: 20250115
  Serious: Yes (Other)
  Sender: ORGANON
  Company Number: CA-ORGANON-O2411CAN000219

PATIENT

DRUGS (6)
  1. EZETIMIBE [Interacting]
     Active Substance: EZETIMIBE
     Indication: Product used for unknown indication
     Dosage: 10.0 MILLIGRAM 1 EVERY 1 DAYS
     Route: 065
  2. ASPIRIN [Interacting]
     Active Substance: ASPIRIN
     Indication: Product used for unknown indication
     Dosage: 80.0 MILLIGRAM 1 EVERY 1 DAYS
     Route: 065
  3. AMLODIPINE [Interacting]
     Active Substance: AMLODIPINE BESYLATE
     Indication: Product used for unknown indication
     Dosage: 5.0 MILLIGRAM 1 EVERY 1 DAYS
     Route: 065
  4. CHLORTHALIDONE [Interacting]
     Active Substance: CHLORTHALIDONE
     Indication: Product used for unknown indication
     Dosage: 12.5 MILLIGRAM 1 EVERY 1 DAYS
     Route: 065
  5. ROSUVASTATIN [Interacting]
     Active Substance: ROSUVASTATIN
     Indication: Product used for unknown indication
     Dosage: 10.0 MILLIGRAM 1 EVERY 1 DAYS
     Route: 065
  6. TELMISARTAN [Interacting]
     Active Substance: TELMISARTAN
     Indication: Product used for unknown indication
     Dosage: 80.0 MILLIGRAM 1 EVERY 1 DAYS
     Route: 065

REACTIONS (3)
  - Amnesia [Unknown]
  - Drug interaction [Unknown]
  - Muscular weakness [Unknown]
